FAERS Safety Report 26000125 (Version 2)
Quarter: 2025Q4

REPORT INFORMATION
  Report Type: Report from Study
  Country: CA (occurrence: CA)
  Receive Date: 20251105
  Receipt Date: 20251231
  Transmission Date: 20260117
  Serious: Yes (Other)
  Sender: BOEHRINGER INGELHEIM
  Company Number: CA-BoehringerIngelheim-2023-BI-246432

PATIENT
  Age: 73 Year
  Sex: Female
  Weight: 87.4 kg

DRUGS (1)
  1. OFEV [Suspect]
     Active Substance: NINTEDANIB
     Indication: Interstitial lung disease
     Dates: start: 202305

REACTIONS (20)
  - Non-Hodgkin^s lymphoma [Not Recovered/Not Resolved]
  - Deafness unilateral [Not Recovered/Not Resolved]
  - Diarrhoea [Not Recovered/Not Resolved]
  - Nausea [Not Recovered/Not Resolved]
  - Faeces soft [Unknown]
  - Diarrhoea [Recovered/Resolved]
  - Product use complaint [Not Recovered/Not Resolved]
  - Abdominal discomfort [Recovered/Resolved]
  - Product use complaint [Recovered/Resolved]
  - Headache [Not Recovered/Not Resolved]
  - Dyspnoea [Recovered/Resolved]
  - Breast mass [Not Recovered/Not Resolved]
  - Dyspnoea [Not Recovered/Not Resolved]
  - Visual impairment [Not Recovered/Not Resolved]
  - Diverticulitis [Recovered/Resolved]
  - Dyspnoea exertional [Not Recovered/Not Resolved]
  - Wrong technique in product usage process [Unknown]
  - Dehydration [Recovering/Resolving]
  - Pulmonary function test decreased [Unknown]
  - Cataract [Unknown]

NARRATIVE: CASE EVENT DATE: 20230501
